FAERS Safety Report 5017885-0 (Version None)
Quarter: 2006Q2

REPORT INFORMATION
  Report Type: 
  Country: None (occurrence: None)
  Receive Date: 20060602
  Receipt Date: 20060602
  Transmission Date: 20061013
  Serious: Yes (Life-Threatening, Hospitalization)
  Sender: FDA-Public Use
  Company Number: None

PATIENT
  Age: 57 Year
  Sex: Female
  Weight: 71.2147 kg

DRUGS (1)
  1. LYRICA [Suspect]
     Dosage: ONE ONE PO   ONE TIME ONLY
     Route: 048
     Dates: start: 20060505, end: 20060505

REACTIONS (9)
  - DIABETIC COMA [None]
  - DIZZINESS [None]
  - HAEMATEMESIS [None]
  - LOSS OF CONSCIOUSNESS [None]
  - MYOCARDIAL INFARCTION [None]
  - NAUSEA [None]
  - PNEUMONIA [None]
  - VISUAL ACUITY REDUCED [None]
  - WOUND [None]
